FAERS Safety Report 4871841-1 (Version None)
Quarter: 2006Q1

REPORT INFORMATION
  Report Type: 
  Country: None (occurrence: None)
  Receive Date: 20060104
  Receipt Date: 20051005
  Transmission Date: 20060701
  Serious: Yes (Hospitalization, Disabling)
  Sender: FDA-Public Use
  Company Number: US-MERCK-0510USA04134

PATIENT
  Age: 53 Year
  Sex: Male
  Weight: 175 kg

DRUGS (2)
  1. VIOXX [Suspect]
     Indication: ARTHRITIS
     Route: 048
     Dates: start: 20010101, end: 20040901
  2. SINUTAB REGULAR STRENGTH TABLETS [Concomitant]
     Route: 065

REACTIONS (5)
  - ARRHYTHMIA [None]
  - ATRIAL FIBRILLATION [None]
  - BACK PAIN [None]
  - HEART RATE INCREASED [None]
  - OVERDOSE [None]
